FAERS Safety Report 21482652 (Version 1)
Quarter: 2022Q4

REPORT INFORMATION
  Report Type: Report from Study
  Country: AT (occurrence: AT)
  Receive Date: 20221020
  Receipt Date: 20221020
  Transmission Date: 20230113
  Serious: Yes (Hospitalization, Other)
  Sender: FDA-Public Use
  Company Number: AT-ABBVIE-4168055

PATIENT
  Age: 31 Year
  Sex: Female

DRUGS (1)
  1. HUMIRA [Suspect]
     Active Substance: ADALIMUMAB
     Indication: Colitis ulcerative
     Route: 058
     Dates: start: 20180918, end: 202112

REACTIONS (5)
  - Cervical dysplasia [Recovered/Resolved]
  - Immunosuppression [Unknown]
  - Papilloma viral infection [Unknown]
  - Cervix carcinoma stage 0 [Recovered/Resolved]
  - Cervical conisation [Unknown]
